FAERS Safety Report 8437587-8 (Version None)
Quarter: 2012Q2

REPORT INFORMATION
  Report Type: 
  Country: None (occurrence: None)
  Receive Date: 20120323
  Receipt Date: 20110617
  Transmission Date: 20120825
  Serious: Yes (Hospitalization)
  Sender: FDA-Public Use
  Company Number: 163-21880-11062471

PATIENT
  Age: 74 Year
  Sex: Male

DRUGS (9)
  1. SODIUM BICARBONATE IN PLASTIC CONTAINER [Concomitant]
  2. LOVASTATIN [Concomitant]
  3. TERAZOSIN HCL [Concomitant]
  4. ALTACE [Concomitant]
  5. PENTOXIFYLLINE CR (PENTOXIFYLLINE) [Concomitant]
  6. INSPRA [Concomitant]
  7. BENICAR [Concomitant]
  8. REVLIMID [Suspect]
     Indication: MYELODYSPLASTIC SYNDROME
     Dosage: 5 MG, DAILY X 28 DAYS, PO
     Route: 048
     Dates: start: 20110519, end: 20110101
  9. ZEMPLAR [Concomitant]

REACTIONS (3)
  - DIZZINESS [None]
  - DIARRHOEA [None]
  - DEHYDRATION [None]
